FAERS Safety Report 19436815 (Version 2)
Quarter: 2021Q2

REPORT INFORMATION
  Report Type: Spontaneous
  Country: BR (occurrence: BR)
  Receive Date: 20210618
  Receipt Date: 20210625
  Transmission Date: 20210717
  Serious: Yes (Other)
  Sender: FDA-Public Use
  Company Number: BR-JNJFOC-20210630724

PATIENT
  Age: 63 Year
  Sex: Female

DRUGS (1)
  1. INFLIXIMAB, RECOMBINANT [Suspect]
     Active Substance: INFLIXIMAB
     Indication: CROHN^S DISEASE
     Route: 042

REACTIONS (5)
  - Anal fistula [Unknown]
  - Treatment failure [Unknown]
  - Herpes zoster [Unknown]
  - Crohn^s disease [Not Recovered/Not Resolved]
  - Pyoderma gangrenosum [Unknown]
